FAERS Safety Report 9328568 (Version 1)
Quarter: 2013Q2

REPORT INFORMATION
  Report Type: Spontaneous
  Country: US (occurrence: US)
  Receive Date: 20130604
  Receipt Date: 20130604
  Transmission Date: 20140414
  Serious: No
  Sender: FDA-Public Use
  Company Number: US-SANOFI-AVENTIS-2012SA024025

PATIENT
  Age: 87 Year
  Sex: Male

DRUGS (2)
  1. SOLOSTAR [Suspect]
  2. LANTUS [Suspect]
     Dosage: DOSE:24 UNIT(S)
     Route: 058

REACTIONS (3)
  - Injury associated with device [Unknown]
  - Blood glucose increased [Unknown]
  - Product quality issue [Unknown]
